FAERS Safety Report 18762018 (Version 1)
Quarter: 2021Q1

REPORT INFORMATION
  Report Type: Spontaneous
  Country: US (occurrence: US)
  Receive Date: 20210119
  Receipt Date: 20210119
  Transmission Date: 20210419
  Serious: Yes (Other)
  Sender: FDA-Public Use
  Company Number: None

PATIENT
  Age: 36 Year
  Sex: Female
  Weight: 77.4 kg

DRUGS (2)
  1. AJOVY [Concomitant]
     Active Substance: FREMANEZUMAB-VFRM
  2. AIMOVIG [Suspect]
     Active Substance: ERENUMAB-AOOE
     Indication: MIGRAINE
     Dosage: ?          OTHER FREQUENCY:1X A MONTH;OTHER ROUTE:INJECTION?
     Dates: start: 20200101, end: 20201201

REACTIONS (1)
  - Gastrointestinal disorder [None]

NARRATIVE: CASE EVENT DATE: 20200201
